FAERS Safety Report 7252780-8 (Version None)
Quarter: 2011Q1

REPORT INFORMATION
  Report Type: 
  Country: None (occurrence: None)
  Receive Date: 20110129
  Receipt Date: 20100125
  Transmission Date: 20110831
  Serious: No
  Sender: FDA-Public Use
  Company Number: US-ABBOTT-10P-163-0622127-00

PATIENT
  Sex: Female
  Weight: 60.836 kg

DRUGS (2)
  1. HUMIRA [Suspect]
     Indication: COLITIS ULCERATIVE
  2. HUMIRA [Suspect]
     Indication: ANKYLOSING SPONDYLITIS
     Dates: start: 20100109, end: 20100123

REACTIONS (2)
  - PHARYNGITIS STREPTOCOCCAL [None]
  - NASOPHARYNGITIS [None]
